FAERS Safety Report 9380261 (Version 1)
Quarter: 2013Q3

REPORT INFORMATION
  Report Type: Spontaneous
  Country: US (occurrence: None)
  Receive Date: 20130701
  Receipt Date: 20130701
  Transmission Date: 20140515
  Serious: Yes (Disabling)
  Sender: FDA-Public Use
  Company Number: None

PATIENT
  Age: 62 Year
  Sex: Female
  Weight: 86.18 kg

DRUGS (18)
  1. VESICARE [Suspect]
     Indication: INCONTINENCE
     Dosage: 10 MG 1 PILL ONCE DAILY ORALLY
     Route: 048
     Dates: start: 2009, end: 201212
  2. DEXILANT [Concomitant]
  3. ZOLOFT [Concomitant]
  4. EFFIENT [Concomitant]
  5. TREXALL [Concomitant]
  6. ATENOLOL [Concomitant]
  7. DIOVAN/HCT [Concomitant]
  8. MIRABEGRON [Concomitant]
  9. CYMBALTA [Concomitant]
  10. LIVALO [Concomitant]
  11. LYRICA [Concomitant]
  12. METFORMIN HCL [Concomitant]
  13. ORENCIA [Concomitant]
  14. CALCIUM [Concomitant]
  15. D3 [Concomitant]
  16. ASPRIN [Concomitant]
  17. ULTRAM [Concomitant]
  18. FOLGARD [Concomitant]

REACTIONS (7)
  - Balance disorder [None]
  - Speech disorder [None]
  - Thinking abnormal [None]
  - Memory impairment [None]
  - Cognitive disorder [None]
  - Impaired work ability [None]
  - Mental disorder [None]
